FAERS Safety Report 13644941 (Version 1)
Quarter: 2017Q2

REPORT INFORMATION
  Report Type: Spontaneous
  Country: US (occurrence: US)
  Receive Date: 20170612
  Receipt Date: 20170612
  Transmission Date: 20170830
  Serious: No
  Sender: FDA-Public Use
  Company Number: US-ROCHE-1312857

PATIENT
  Age: 44 Year
  Sex: Female

DRUGS (4)
  1. XELODA [Suspect]
     Active Substance: CAPECITABINE
     Indication: OVARIAN CANCER
     Route: 048
     Dates: start: 20131128
  2. VITAMIN C [Concomitant]
     Active Substance: ASCORBIC ACID
  3. GLUTAMINE POWDER [Concomitant]
  4. VITAMIN A [Concomitant]
     Active Substance: VITAMIN A

REACTIONS (3)
  - Skin exfoliation [Unknown]
  - Arthralgia [Unknown]
  - Nausea [Recovered/Resolved]

NARRATIVE: CASE EVENT DATE: 20131201
